FAERS Safety Report 4479727-1 (Version None)
Quarter: 2004Q4

REPORT INFORMATION
  Report Type: 
  Country: None (occurrence: None)
  Receive Date: 20041020
  Receipt Date: 20041012
  Transmission Date: 20050328
  Serious: Yes (Other)
  Sender: FDA-Public Use
  Company Number: PHEH2004US11008

PATIENT
  Age: 60 Year
  Sex: Female

DRUGS (2)
  1. VOLTAREN [Suspect]
     Indication: ANKYLOSING SPONDYLITIS
     Dosage: 25 MG, QID
     Route: 048
     Dates: start: 19880101
  2. BETA BLOCKING AGENTS [Concomitant]

REACTIONS (4)
  - DISEASE PROGRESSION [None]
  - FIBROMYALGIA [None]
  - MYALGIA [None]
  - PAIN [None]
